FAERS Safety Report 23628652 (Version 1)
Quarter: 2024Q1

REPORT INFORMATION
  Report Type: Spontaneous
  Country: US (occurrence: US)
  Receive Date: 20240313
  Receipt Date: 20240313
  Transmission Date: 20240410
  Serious: Yes (Other)
  Sender: FDA-Public Use
  Company Number: US-AMGEN-USASP2024047705

PATIENT

DRUGS (2)
  1. BEVACIZUMAB [Suspect]
     Active Substance: BEVACIZUMAB
     Indication: Hepatocellular carcinoma
     Dosage: UNK
     Route: 065
  2. ATEZOLIZUMAB [Suspect]
     Active Substance: ATEZOLIZUMAB
     Indication: Hepatocellular carcinoma
     Dosage: UNK
     Route: 065

REACTIONS (6)
  - Hepatocellular carcinoma [Unknown]
  - Drug effective for unapproved indication [Unknown]
  - Toxicity to various agents [Unknown]
  - Hepatic function abnormal [Unknown]
  - Eastern Cooperative Oncology Group performance status worsened [Unknown]
  - Off label use [Unknown]
